FAERS Safety Report 7276571-7 (Version None)
Quarter: 2011Q1

REPORT INFORMATION
  Report Type: 
  Country: None (occurrence: None)
  Receive Date: 20110204
  Receipt Date: 20110126
  Transmission Date: 20110831
  Serious: Yes (Hospitalization)
  Sender: FDA-Public Use
  Company Number: CH-ASTRAZENECA-2011SE05259

PATIENT
  Age: 73 Year
  Sex: Female

DRUGS (10)
  1. SEROQUEL [Suspect]
     Indication: DELUSIONAL DISORDER, UNSPECIFIED TYPE
     Route: 048
     Dates: end: 20101019
  2. ABILIFY [Suspect]
     Route: 048
     Dates: start: 20101019, end: 20101021
  3. ABILIFY [Suspect]
     Route: 048
     Dates: start: 20101109, end: 20101114
  4. SEROQUEL [Suspect]
     Route: 048
     Dates: start: 20101020
  5. ABILIFY [Suspect]
     Route: 048
     Dates: start: 20101027, end: 20101029
  6. ABILIFY [Suspect]
     Route: 048
     Dates: start: 20101030, end: 20101102
  7. ABILIFY [Suspect]
     Route: 048
     Dates: start: 20101103, end: 20101108
  8. ABILIFY [Suspect]
     Route: 048
     Dates: start: 20101024, end: 20101026
  9. ABILIFY [Suspect]
     Route: 048
     Dates: start: 20101022, end: 20101023
  10. ABILIFY [Suspect]
     Route: 048
     Dates: start: 20101115, end: 20101117

REACTIONS (5)
  - IRRITABILITY [None]
  - DIZZINESS [None]
  - FEELING ABNORMAL [None]
  - FATIGUE [None]
  - AKATHISIA [None]
